FAERS Safety Report 8218864-2 (Version None)
Quarter: 2012Q1

REPORT INFORMATION
  Report Type: 
  Country: None (occurrence: None)
  Receive Date: 20120319
  Receipt Date: 20120315
  Transmission Date: 20120608
  Serious: Yes (Death)
  Sender: FDA-Public Use
  Company Number: PHHY2012DO023201

PATIENT
  Age: 42 Year
  Sex: Male

DRUGS (1)
  1. EXELON [Suspect]
     Dosage: 1.5 MG, UNK
     Route: 048

REACTIONS (1)
  - DEATH [None]
